FAERS Safety Report 7979241-2 (Version None)
Quarter: 2011Q4

REPORT INFORMATION
  Report Type: 
  Country: None (occurrence: None)
  Receive Date: 20111214
  Receipt Date: 20111214
  Transmission Date: 20120403
  Serious: Yes (Hospitalization)
  Sender: FDA-Public Use
  Company Number: None

PATIENT
  Sex: Male
  Weight: 90.718 kg

DRUGS (1)
  1. BUPROPION HCL [Suspect]
     Indication: EX-TOBACCO USER
     Dosage: 1
     Route: 048

REACTIONS (1)
  - SUBDURAL HAEMATOMA [None]
